FAERS Safety Report 4533034-7 (Version None)
Quarter: 2004Q4

REPORT INFORMATION
  Report Type: 
  Country: None (occurrence: None)
  Receive Date: 20041206
  Receipt Date: 20040319
  Transmission Date: 20050328
  Serious: No
  Sender: FDA-Public Use
  Company Number: 04P-163-0254066-00

PATIENT
  Age: 31 Year
  Sex: Male

DRUGS (2)
  1. BIAXIN [Suspect]
     Indication: BRONCHITIS
     Dates: start: 20040228, end: 20040302
  2. BIAXIN [Suspect]
     Indication: TONSILLITIS
     Dates: start: 20040228, end: 20040302

REACTIONS (2)
  - DRUG INEFFECTIVE [None]
  - PANCREATITIS [None]
